FAERS Safety Report 6181567-2 (Version None)
Quarter: 2009Q2

REPORT INFORMATION
  Report Type: 
  Country: None (occurrence: None)
  Receive Date: 20090506
  Receipt Date: 20090429
  Transmission Date: 20091009
  Serious: Yes (Death, Hospitalization, Disabling)
  Sender: FDA-Public Use
  Company Number: PL-JNJFOC-20090500701

PATIENT
  Sex: Female
  Weight: 85 kg

DRUGS (1)
  1. DOXORUBICIN HCL [Suspect]
     Indication: OVARIAN CANCER
     Route: 042

REACTIONS (9)
  - ANAEMIA [None]
  - ASCITES [None]
  - DEATH [None]
  - FATIGUE [None]
  - HYDROTHORAX [None]
  - HYPOALBUMINAEMIA [None]
  - HYPOPROTEINAEMIA [None]
  - PLEURAL EFFUSION [None]
  - THROMBOPHLEBITIS [None]
